FAERS Safety Report 5296875-7 (Version None)
Quarter: 2007Q2

REPORT INFORMATION
  Report Type: 
  Country: None (occurrence: None)
  Receive Date: 20070413
  Receipt Date: 20070403
  Transmission Date: 20071010
  Serious: Yes (Congenital Anomaly, Other)
  Sender: FDA-Public Use
  Company Number: FR-PFIZER INC-2007027910

PATIENT
  Age: 44 Year
  Sex: Male

DRUGS (7)
  1. TAHOR [Suspect]
     Indication: CARDIAC DISORDER
     Dates: start: 20061201, end: 20070125
  2. ASPIRIN [Concomitant]
  3. CLOPIDOGREL [Concomitant]
  4. ACEBUTOLOL [Concomitant]
  5. PERINDOPRIL ERBUMINE [Concomitant]
  6. ESOMEPRAZOLE MAGNESIUM [Concomitant]
  7. PANTOPRAZOLE [Concomitant]

REACTIONS (8)
  - ALANINE AMINOTRANSFERASE INCREASED [None]
  - ASPARTATE AMINOTRANSFERASE INCREASED [None]
  - CELL DEATH [None]
  - CHEST PAIN [None]
  - GAMMA-GLUTAMYLTRANSFERASE INCREASED [None]
  - GASTRITIS [None]
  - HELICOBACTER INFECTION [None]
  - LIVER FUNCTION TEST ABNORMAL [None]
